FAERS Safety Report 5171288-7 (Version None)
Quarter: 2006Q4

REPORT INFORMATION
  Report Type: 
  Country: None (occurrence: None)
  Receive Date: 20061213
  Receipt Date: 20050921
  Transmission Date: 20070319
  Serious: Yes (Other)
  Sender: FDA-Public Use
  Company Number: US-AMGEN-US151360

PATIENT
  Sex: Female

DRUGS (20)
  1. ENBREL [Suspect]
     Indication: PSORIASIS
     Dates: start: 20040201, end: 20050901
  2. ENBREL [Suspect]
     Indication: PSORIATIC ARTHROPATHY
  3. BENICAR [Concomitant]
  4. LEVOTHYROXINE SODIUM [Concomitant]
  5. PREMARIN [Concomitant]
  6. MOBIC [Concomitant]
  7. PRAVACHOL [Concomitant]
  8. TOPROL-XL [Concomitant]
  9. METHADONE HCL [Concomitant]
  10. HYDROCODONE BITARTRATE + ACETAMINOPHEN [Concomitant]
  11. ALBUTEROL [Concomitant]
  12. HYDROCHLOROTHIAZIDE [Concomitant]
  13. LEXAPRO [Concomitant]
  14. PROVIGIL [Concomitant]
  15. VITAMIN B-12 [Concomitant]
  16. LUNESTA [Concomitant]
  17. BETASERON [Concomitant]
  18. IBUPROFEN [Concomitant]
  19. NEURONTIN [Concomitant]
  20. BEXTRA [Concomitant]

REACTIONS (1)
  - MULTIPLE SCLEROSIS [None]
